FAERS Safety Report 4901958-4 (Version None)
Quarter: 2006Q1

REPORT INFORMATION
  Report Type: 
  Country: None (occurrence: None)
  Receive Date: 20060203
  Receipt Date: 20060203
  Transmission Date: 20060701
  Serious: Yes (Hospitalization)
  Sender: FDA-Public Use
  Company Number: None

PATIENT
  Age: 74 Year
  Sex: Male
  Weight: 84.6 kg

DRUGS (4)
  1. WARFARIN [Suspect]
  2. ASPIRIN [Concomitant]
  3. OMEPRAZOLE [Concomitant]
  4. PHYTONADIONE [Concomitant]

REACTIONS (1)
  - GASTROINTESTINAL HAEMORRHAGE [None]
